FAERS Safety Report 9973022 (Version 1)
Quarter: 2014Q1

REPORT INFORMATION
  Report Type: Spontaneous
  Country: US (occurrence: US)
  Receive Date: 20140306
  Receipt Date: 20140306
  Transmission Date: 20141002
  Serious: No
  Sender: FDA-Public Use
  Company Number: US-BAYER-2014-024354

PATIENT
  Age: 65 Year
  Sex: Male
  Weight: 93.42 kg

DRUGS (7)
  1. BAYER CHEWABLE LOW DOSE BABY ASPIRIN TABLET ORANGE [Suspect]
     Indication: ISCHAEMIC HEART DISEASE PROPHYLAXIS
     Dosage: 1 DF, QD
     Route: 048
     Dates: start: 1994, end: 2012
  2. ALEVE CAPLET [Suspect]
     Indication: ISCHAEMIC HEART DISEASE PROPHYLAXIS
     Dosage: 1 DF, QD
     Route: 048
     Dates: start: 2012
  3. OMEPRAZOLE [Concomitant]
  4. ATENOLOL [Concomitant]
  5. AMLODIPINE W/BENAZEPRIL [Concomitant]
  6. AMLODIPINE W/BENAZEPRIL [Concomitant]
  7. SIMVASTATIN [Concomitant]

REACTIONS (4)
  - Off label use [None]
  - Tinnitus [Not Recovered/Not Resolved]
  - Off label use [None]
  - Incorrect drug administration duration [None]
